FAERS Safety Report 7673398-9 (Version None)
Quarter: 2011Q3

REPORT INFORMATION
  Report Type: 
  Country: None (occurrence: None)
  Receive Date: 20110810
  Receipt Date: 20110805
  Transmission Date: 20111222
  Serious: Yes (Death, Other)
  Sender: FDA-Public Use
  Company Number: GB-JNJFOC-20110512411

PATIENT
  Age: 62 Year
  Sex: Male

DRUGS (9)
  1. PREDNISOLONE [Concomitant]
     Route: 065
  2. CODEINE SULFATE [Concomitant]
     Route: 065
  3. LEVOFLOXACIN [Suspect]
     Indication: LOWER RESPIRATORY TRACT INFECTION
     Route: 048
     Dates: start: 20100826, end: 20100831
  4. AZITHROMYCIN [Concomitant]
     Route: 065
  5. CALCIUM CARBONATE [Concomitant]
     Route: 065
  6. ALBUTEROL [Concomitant]
     Route: 065
  7. INSULIN ISOPHANE, HUMAN BIOSYNTHETIC [Concomitant]
     Route: 065
  8. CARBOCISTEINE [Concomitant]
     Route: 065
  9. LANSOPRAZOLE [Concomitant]
     Route: 065

REACTIONS (3)
  - PERIPHERAL ISCHAEMIA [None]
  - HEPATORENAL FAILURE [None]
  - PNEUMONIA [None]
